FAERS Safety Report 6190533-2 (Version None)
Quarter: 2009Q2

REPORT INFORMATION
  Report Type: 
  Country: None (occurrence: None)
  Receive Date: 20090514
  Receipt Date: 20090513
  Transmission Date: 20091009
  Serious: Yes (Death, Life-Threatening, Hospitalization, Other)
  Sender: FDA-Public Use
  Company Number: PHHY2009JP09629

PATIENT
  Sex: Male

DRUGS (13)
  1. VOLTAREN [Suspect]
     Indication: RHEUMATOID ARTHRITIS
     Dosage: 25MG PER DAY
     Route: 054
     Dates: start: 20060130, end: 20070830
  2. VOLTAREN [Suspect]
     Dosage: 25MG PER DAY
     Route: 054
     Dates: start: 20030507, end: 20031225
  3. VOLTAREN [Suspect]
     Dosage: 12.5MG PER DAY
     Route: 054
     Dates: start: 20060126
  4. RHEUMATREX [Suspect]
     Indication: RHEUMATOID ARTHRITIS
     Dosage: UNK
     Route: 048
     Dates: start: 20060322, end: 20070830
  5. PURSENNID [Concomitant]
     Indication: CONSTIPATION
     Dosage: 2DF
     Route: 048
  6. PREDONINE [Concomitant]
     Indication: RHEUMATOID ARTHRITIS
     Dosage: 20MG
     Route: 048
     Dates: start: 20060302
  7. PREDONINE [Concomitant]
     Dosage: 10MG
     Route: 048
  8. PREDONINE [Concomitant]
     Dosage: 5MG
     Route: 048
  9. PREDONINE [Concomitant]
     Dosage: 10MG
     Route: 048
  10. PREDONINE [Concomitant]
     Dosage: 5MG
     Route: 048
  11. NEUROTROPIN [Concomitant]
     Indication: OSTEOARTHRITIS
     Dosage: 4DF
     Route: 048
     Dates: start: 20060322, end: 20060830
  12. FERROMIA [Concomitant]
     Indication: ANAEMIA
     Dosage: 1DF
     Route: 048
     Dates: start: 20040519, end: 20070813
  13. PARIET [Concomitant]
     Indication: GASTRIC ULCER
     Dosage: 1DF
     Route: 048
     Dates: start: 20040810, end: 20070809

REACTIONS (12)
  - ANASTOMOTIC ULCER [None]
  - DEATH [None]
  - HAEMOGLOBIN DECREASED [None]
  - MALAISE [None]
  - MECHANICAL VENTILATION [None]
  - NEUTROPHIL COUNT DECREASED [None]
  - PANCYTOPENIA [None]
  - PLATELET COUNT DECREASED [None]
  - PNEUMONIA [None]
  - PYREXIA [None]
  - TRACHEOSTOMY [None]
  - WHITE BLOOD CELL COUNT DECREASED [None]
